FAERS Safety Report 9426035 (Version 4)
Quarter: 2013Q4

REPORT INFORMATION
  Report Type: Report from Study
  Country: BE (occurrence: BE)
  Receive Date: 20130730
  Receipt Date: 20131224
  Transmission Date: 20140711
  Serious: Yes (Life-Threatening, Hospitalization)
  Sender: FDA-Public Use
  Company Number: BE-AMGEN-BELCT2013052929

PATIENT
  Age: 77 Year
  Sex: Female
  Weight: 56 kg

DRUGS (2)
  1. ETANERCEPT [Suspect]
     Indication: RHEUMATOID ARTHRITIS
     Dosage: 50 MG, WEEKLY
     Route: 058
     Dates: start: 20040217, end: 200809
  2. ETANERCEPT [Suspect]
     Dosage: 50 MG, WEEKLY
     Route: 058
     Dates: start: 200811, end: 20100201

REACTIONS (3)
  - Pancreatic carcinoma [Recovered/Resolved]
  - Pancreatic carcinoma metastatic [Unknown]
  - Cardiac failure acute [Recovered/Resolved]
